FAERS Safety Report 5829510-7 (Version None)
Quarter: 2008Q3

REPORT INFORMATION
  Report Type: 
  Country: None (occurrence: None)
  Receive Date: 20080729
  Receipt Date: 20080715
  Transmission Date: 20090109
  Serious: Yes (Hospitalization)
  Sender: FDA-Public Use
  Company Number: 15047

PATIENT
  Age: 47 Year
  Sex: Male
  Weight: 70.3075 kg

DRUGS (4)
  1. MORPHINE SULFATE [Suspect]
     Indication: ARTHRITIS
     Dosage: 60 MG TID ORALLY
     Route: 048
     Dates: start: 20080601
  2. DILANTIN [Concomitant]
  3. DEPAKOTE [Concomitant]
  4. VALIUM [Concomitant]

REACTIONS (7)
  - ACTIVITIES OF DAILY LIVING IMPAIRED [None]
  - ANALGESIC DRUG LEVEL INCREASED [None]
  - DYSARTHRIA [None]
  - FALL [None]
  - GRAND MAL CONVULSION [None]
  - HIP FRACTURE [None]
  - UNEVALUABLE EVENT [None]
